FAERS Safety Report 7757372-X (Version None)
Quarter: 2011Q3

REPORT INFORMATION
  Report Type: 
  Country: None (occurrence: None)
  Receive Date: 20110916
  Receipt Date: 20110912
  Transmission Date: 20111222
  Serious: Yes (Other)
  Sender: FDA-Public Use
  Company Number: US-BAYER-2011-086053

PATIENT

DRUGS (32)
  1. MAGNEVIST [Suspect]
     Dosage: UNK
     Dates: start: 20020825
  2. PROHANCE [Suspect]
     Dosage: UNK
     Dates: start: 20020825
  3. MAGNEVIST [Suspect]
     Dosage: UNK
     Dates: start: 19990216
  4. OPTIMARK [Suspect]
     Dosage: UNK
     Dates: start: 20021211
  5. OPTIMARK [Suspect]
     Dosage: UNK
     Dates: start: 20031101
  6. MAGNEVIST [Suspect]
     Dosage: UNK
     Dates: start: 20031101
  7. OMNISCAN [Suspect]
     Dosage: UNK
     Dates: start: 20020712
  8. OMNISCAN [Suspect]
     Dosage: UNK
     Dates: start: 20021211
  9. OPTIMARK [Suspect]
     Dosage: UNK
     Dates: start: 19971003
  10. OPTIMARK [Suspect]
     Dosage: UNK
     Dates: start: 20020712
  11. MULTIHANCE [Suspect]
     Dosage: UNK
     Dates: start: 20020825
  12. OMNISCAN [Suspect]
     Dosage: UNK
     Dates: start: 20021204
  13. OMNISCAN [Suspect]
     Dosage: UNK
     Dates: start: 20040916
  14. MULTIHANCE [Suspect]
     Dosage: UNK
     Dates: start: 19971003
  15. MULTIHANCE [Suspect]
     Dosage: UNK
     Dates: start: 20031101
  16. PROHANCE [Suspect]
     Dosage: UNK
     Dates: start: 20020712
  17. MAGNEVIST [Suspect]
     Dosage: UNK
     Dates: start: 19971003
  18. MAGNEVIST [Suspect]
     Dosage: UNK
     Dates: start: 20100712
  19. MAGNEVIST [Suspect]
     Dosage: UNK
     Dates: start: 20021211
  20. OMNISCAN [Suspect]
     Dosage: UNK
     Dates: start: 19971003
  21. OMNISCAN [Suspect]
     Dosage: UNK
     Dates: start: 20020825
  22. MULTIHANCE [Suspect]
     Dosage: UNK
     Dates: start: 20020712
  23. MULTIHANCE [Suspect]
     Dosage: UNK
     Dates: start: 20021211
  24. PROHANCE [Suspect]
     Dosage: UNK
     Dates: start: 19990216
  25. OMNISCAN [Suspect]
     Dosage: UNK
     Dates: start: 19990216
  26. OMNISCAN [Suspect]
     Dosage: UNK
     Dates: start: 20031101
  27. PROHANCE [Suspect]
     Dosage: UNK
     Dates: start: 20031101
  28. OPTIMARK [Suspect]
     Dosage: UNK
     Dates: start: 19990216
  29. OPTIMARK [Suspect]
     Dosage: UNK
     Dates: start: 20020825
  30. MULTIHANCE [Suspect]
     Dosage: UNK
     Dates: start: 19990216
  31. PROHANCE [Suspect]
     Dosage: UNK
     Dates: start: 19971003
  32. PROHANCE [Suspect]
     Dosage: UNK
     Dates: start: 20021211

REACTIONS (5)
  - FIBROSIS [None]
  - NEPHROGENIC SYSTEMIC FIBROSIS [None]
  - PAIN [None]
  - EMOTIONAL DISTRESS [None]
  - INJURY [None]
